FAERS Safety Report 8423984-3 (Version None)
Quarter: 2012Q2

REPORT INFORMATION
  Report Type: 
  Country: None (occurrence: None)
  Receive Date: 20120608
  Receipt Date: 20120604
  Transmission Date: 20120825
  Serious: Yes (Life-Threatening, Hospitalization)
  Sender: FDA-Public Use
  Company Number: CHPA2012US011770

PATIENT
  Age: 72 Year
  Sex: Male

DRUGS (3)
  1. ACETYLSALICYLIC ACID SRT [Suspect]
     Dosage: UNK, UNK
  2. VOLTAREN [Suspect]
     Dosage: UNK, UNK
     Route: 048
  3. EXCEDRIN TENSION HEADACHE CAPLETS [Suspect]
     Indication: PAIN
     Dosage: UNK, UNK
     Route: 048
     Dates: end: 20111201

REACTIONS (3)
  - PNEUMONIA [None]
  - ULCER [None]
  - APPARENT DEATH [None]
